FAERS Safety Report 7011715-3 (Version None)
Quarter: 2010Q3

REPORT INFORMATION
  Report Type: 
  Country: None (occurrence: None)
  Receive Date: 20100923
  Receipt Date: 20090424
  Transmission Date: 20110219
  Serious: No
  Sender: FDA-Public Use
  Company Number: US-WYE-H09136309

PATIENT
  Age: 38 Year
  Sex: Female
  Weight: 68.1 kg

DRUGS (1)
  1. PREMARIN [Suspect]
     Indication: VULVOVAGINAL DRYNESS
     Dosage: 2 G, TWICE WEEKLY

REACTIONS (1)
  - VAGINAL ODOUR [None]
